FAERS Safety Report 5068397-X (Version None)
Quarter: 2006Q3

REPORT INFORMATION
  Report Type: 
  Country: None (occurrence: None)
  Receive Date: 20060802
  Receipt Date: 20050908
  Transmission Date: 20061208
  Serious: No
  Sender: FDA-Public Use
  Company Number: US-BRISTOL-MYERS SQUIBB COMPANY-13104559

PATIENT
  Age: 78 Year
  Sex: Male
  Weight: 80 kg

DRUGS (8)
  1. COUMADIN [Suspect]
     Indication: CORONARY ARTERY BYPASS
     Dosage: STARTED TAKING 5 MG DAILY IN JUN-1997, CURRENTLY TAKES 2 1/2 MG ALTERNATING WITH 5 MG DAILY
     Dates: start: 19970601
  2. COUMADIN [Suspect]
     Indication: CARDIAC PACEMAKER INSERTION
     Dosage: STARTED TAKING 5 MG DAILY IN JUN-1997, CURRENTLY TAKES 2 1/2 MG ALTERNATING WITH 5 MG DAILY
     Dates: start: 19970601
  3. PREDNISONE [Concomitant]
  4. POTASSIUM [Concomitant]
  5. NEXIUM [Concomitant]
  6. ALBUTEROL [Concomitant]
  7. AMBIEN [Concomitant]
  8. TEMAZEPAM [Concomitant]

REACTIONS (2)
  - HAEMATOCHEZIA [None]
  - ULCER [None]
